FAERS Safety Report 9092794 (Version 1)
Quarter: 2013Q1

REPORT INFORMATION
  Report Type: Spontaneous
  Country: US (occurrence: US)
  Receive Date: 20130218
  Receipt Date: 20130218
  Transmission Date: 20140127
  Serious: No
  Sender: FDA-Public Use
  Company Number: US-ABBOTT-13P-163-1037314-00

PATIENT
  Sex: Male
  Weight: 88.98 kg

DRUGS (1)
  1. SIMCOR 500/20 [Suspect]
     Indication: LOW DENSITY LIPOPROTEIN ABNORMAL
     Dates: start: 20130115

REACTIONS (2)
  - Paraesthesia [Recovered/Resolved]
  - Feeling hot [Recovered/Resolved]
